FAERS Safety Report 7287854-9 (Version None)
Quarter: 2011Q1

REPORT INFORMATION
  Report Type: 
  Country: None (occurrence: None)
  Receive Date: 20110211
  Receipt Date: 20110208
  Transmission Date: 20110831
  Serious: No
  Sender: FDA-Public Use
  Company Number: US-PFIZER INC-2010178885

PATIENT
  Sex: Male
  Weight: 77 kg

DRUGS (6)
  1. NITROSTAT [Suspect]
     Indication: CHEST PAIN
  2. PLAVIX [Concomitant]
     Dosage: 75 MG, UNK
  3. NITROSTAT [Suspect]
     Indication: CORONARY ARTERY DISEASE
     Dosage: 0.4 MG, AS NEEDED
     Route: 060
  4. ASPIRIN [Concomitant]
     Dosage: UNK, DAILY
  5. NIFEDIPINE [Concomitant]
     Dosage: UNK
  6. DIOVAN [Concomitant]
     Dosage: 160 MG, UNK

REACTIONS (1)
  - DRUG INEFFECTIVE [None]
